FAERS Safety Report 6766229-2 (Version None)
Quarter: 2010Q2

REPORT INFORMATION
  Report Type: 
  Country: None (occurrence: None)
  Receive Date: 20100611
  Receipt Date: 20100602
  Transmission Date: 20101027
  Serious: Yes (Other)
  Sender: FDA-Public Use
  Company Number: US-JNJFOC-20100601384

PATIENT
  Age: 41 Year
  Sex: Male
  Weight: 86.18 kg

DRUGS (7)
  1. REMICADE [Suspect]
     Indication: CROHN'S DISEASE
     Route: 042
  2. REMICADE [Suspect]
     Route: 042
  3. FENTANYL [Concomitant]
  4. METHOTREXATE [Concomitant]
  5. OXYCODONE [Concomitant]
  6. FOSAMAX [Concomitant]
  7. PRILOSEC [Concomitant]

REACTIONS (2)
  - CROHN'S DISEASE [None]
  - HERNIA [None]
